FAERS Safety Report 8578156-9 (Version None)
Quarter: 2012Q3

REPORT INFORMATION
  Report Type: 
  Country: None (occurrence: None)
  Receive Date: 20120808
  Receipt Date: 20120801
  Transmission Date: 20120928
  Serious: Yes (Life-Threatening, Other)
  Sender: FDA-Public Use
  Company Number: US-SANOFI-AVENTIS-2012SA046144

PATIENT
  Age: 73 Year
  Sex: Male
  Weight: 68.18 kg

DRUGS (2)
  1. LANTUS [Suspect]
     Dosage: DOSE: 10 UNITS IN MORNING AND 30 UNITS AT NIGHT.
     Route: 058
  2. NOVOLOG [Suspect]
     Route: 065

REACTIONS (2)
  - DIABETIC COMA [None]
  - WRONG DRUG ADMINISTERED [None]
